FAERS Safety Report 15321365 (Version 1)
Quarter: 2018Q3

REPORT INFORMATION
  Report Type: Report from Study
  Country: None (occurrence: US)
  Receive Date: 20180827
  Receipt Date: 20180827
  Transmission Date: 20181010
  Serious: Yes (Other)
  Sender: FDA-Public Use
  Company Number: US-ABBVIE-17K-163-2204852-00

PATIENT
  Age: 75 Year
  Sex: Male
  Weight: 95.34 kg

DRUGS (1)
  1. HUMIRA [Suspect]
     Active Substance: ADALIMUMAB
     Indication: CROHN^S DISEASE
     Route: 058
     Dates: start: 201703

REACTIONS (8)
  - Fungal infection [Recovered/Resolved]
  - Nasopharyngitis [Recovering/Resolving]
  - Cardiac disorder [Recovering/Resolving]
  - Anal fistula [Recovered/Resolved]
  - Surgery [Unknown]
  - Impaired healing [Not Recovered/Not Resolved]
  - Post procedural complication [Not Recovered/Not Resolved]
  - Cough [Not Recovered/Not Resolved]

NARRATIVE: CASE EVENT DATE: 2017
